FAERS Safety Report 11784012 (Version 2)
Quarter: 2016Q1

REPORT INFORMATION
  Report Type: Spontaneous
  Country: DE (occurrence: DE)
  Receive Date: 20151128
  Receipt Date: 20160323
  Transmission Date: 20160525
  Serious: Yes (Life-Threatening, Hospitalization)
  Sender: FDA-Public Use
  Company Number: GXKR2015DE005071

PATIENT
  Age: 80 Year
  Sex: Male
  Weight: 79 kg

DRUGS (5)
  1. LOSARTAN. [Concomitant]
     Active Substance: LOSARTAN
     Indication: PRODUCT USED FOR UNKNOWN INDICATION
     Dosage: 100 MG, QD
     Route: 048
     Dates: start: 2006
  2. XARELTO [Interacting]
     Active Substance: RIVAROXABAN
     Indication: ATRIAL FIBRILLATION
     Dosage: 1 DF, QD
     Route: 048
     Dates: start: 2013
  3. AMLODIPINE [Concomitant]
     Active Substance: AMLODIPINE BESYLATE
     Indication: PRODUCT USED FOR UNKNOWN INDICATION
     Dosage: 5 MG, UNK
     Route: 048
     Dates: start: 2006
  4. ALLOPURINOL. [Concomitant]
     Active Substance: ALLOPURINOL
     Indication: PRODUCT USED FOR UNKNOWN INDICATION
     Dosage: 150 MG, QD
     Route: 048
     Dates: start: 2006
  5. DICLO SL 1A PHARMA [Suspect]
     Active Substance: DICLOFENAC SODIUM
     Indication: ARTHRALGIA
     Dosage: 75 MG, BID
     Route: 048
     Dates: start: 20151012, end: 20151024

REACTIONS (11)
  - Asthenia [Not Recovered/Not Resolved]
  - Fall [Unknown]
  - Diverticulitis [Unknown]
  - Iron deficiency anaemia [Unknown]
  - Haematoma [Unknown]
  - Gastrointestinal haemorrhage [Unknown]
  - Contusion [Unknown]
  - Haemorrhage [Unknown]
  - Epistaxis [Recovered/Resolved]
  - Exercise tolerance decreased [Not Recovered/Not Resolved]
  - Balance disorder [Unknown]

NARRATIVE: CASE EVENT DATE: 201510
